FAERS Safety Report 7490184-3 (Version None)
Quarter: 2011Q2

REPORT INFORMATION
  Report Type: 
  Country: None (occurrence: None)
  Receive Date: 20110519
  Receipt Date: 20110422
  Transmission Date: 20111010
  Serious: Yes (Hospitalization, Other)
  Sender: FDA-Public Use
  Company Number: US-BAYER-201034759NA

PATIENT
  Age: 20 Year
  Sex: Female
  Weight: 70.295 kg

DRUGS (3)
  1. PENICILLIN [Concomitant]
     Indication: PRODUCT USED FOR UNKNOWN INDICATION
     Dosage: 500 MG, TID
     Route: 048
  2. IBUPROFEN [Concomitant]
     Indication: PRODUCT USED FOR UNKNOWN INDICATION
     Dosage: 200 MG, UNK
     Route: 048
  3. YAZ [Suspect]
     Indication: CONTRACEPTION
     Dosage: UNK UNK, ONCE
     Route: 048
     Dates: start: 20080601, end: 20091001

REACTIONS (5)
  - DYSPEPSIA [None]
  - ABDOMINAL PAIN UPPER [None]
  - CHOLELITHIASIS [None]
  - CHOLECYSTITIS CHRONIC [None]
  - PROCEDURAL PAIN [None]
